FAERS Safety Report 8079982-5 (Version None)
Quarter: 2012Q1

REPORT INFORMATION
  Report Type: 
  Country: None (occurrence: None)
  Receive Date: 20120128
  Receipt Date: 20110803
  Transmission Date: 20120608
  Serious: No
  Sender: FDA-Public Use
  Company Number: US-ABBOTT-11P-163-0843822-00

PATIENT
  Age: 41 Year
  Sex: Female

DRUGS (6)
  1. PREDNISONE TAB [Concomitant]
     Indication: PRODUCT USED FOR UNKNOWN INDICATION
     Dosage: DAILY
  2. SIMVASTATIN [Concomitant]
     Indication: BLOOD CHOLESTEROL INCREASED
     Dosage: DAILY
  3. COLAZAL [Concomitant]
     Indication: COLITIS ULCERATIVE
  4. LEVOTHYROXINE SODIUM [Concomitant]
     Indication: THYROID DISORDER
     Dosage: DAILY
  5. LOPID [Concomitant]
     Indication: BLOOD TRIGLYCERIDES INCREASED
  6. HUMIRA [Suspect]
     Indication: COLITIS ULCERATIVE
     Dosage: (160 MG, LOADING DOSE)
     Dates: start: 20110721

REACTIONS (1)
  - FATIGUE [None]
